FAERS Safety Report 5974041-7 (Version None)
Quarter: 2008Q4

REPORT INFORMATION
  Report Type: 
  Country: None (occurrence: None)
  Receive Date: 20081201
  Receipt Date: 20080124
  Transmission Date: 20090506
  Serious: No
  Sender: FDA-Public Use
  Company Number: US-AMGEN-KDL260294

PATIENT
  Sex: Female
  Weight: 158.9 kg

DRUGS (3)
  1. ENBREL [Suspect]
     Indication: RHEUMATOID ARTHRITIS
     Route: 058
     Dates: start: 20070927
  2. METHOTREXATE [Concomitant]
     Dates: start: 20070621
  3. STELAZINE [Concomitant]
     Dates: start: 20070503

REACTIONS (3)
  - ATELECTASIS [None]
  - BRONCHITIS [None]
  - PNEUMONIA [None]
